FAERS Safety Report 10269417 (Version 1)
Quarter: 2014Q3

REPORT INFORMATION
  Report Type: Not Available
  Country: DK (occurrence: DK)
  Receive Date: 20140701
  Receipt Date: 20140701
  Transmission Date: 20150326
  Serious: Yes (Other)
  Sender: FDA-Public Use
  Company Number: DK-BEH-2014043438

PATIENT
  Age: 80 Year
  Sex: Female
  Weight: 65 kg

DRUGS (3)
  1. MESTINON [Concomitant]
     Active Substance: PYRIDOSTIGMINE BROMIDE
  2. HUMAN ALBUMIN CSL BEHRING [Suspect]
     Active Substance: ALBUMIN (HUMAN)
     Indication: MYASTHENIA GRAVIS
     Dosage: STYRKE: 5 %
     Route: 042
     Dates: start: 20140319, end: 20140319
  3. HUMAN ALBUMIN CSL BEHRING [Suspect]
     Active Substance: ALBUMIN (HUMAN)
     Indication: MYASTHENIA GRAVIS
     Dosage: STYRKE: 5 %
     Route: 042
     Dates: start: 20140319, end: 20140319

REACTIONS (4)
  - Pruritus generalised [Recovered/Resolved]
  - Respiratory distress [Recovered/Resolved]
  - Anaphylactic reaction [Recovered/Resolved]
  - Urticaria [Recovered/Resolved]

NARRATIVE: CASE EVENT DATE: 20140319
